FAERS Safety Report 24984053 (Version 1)
Quarter: 2025Q1

REPORT INFORMATION
  Report Type: Report from Study
  Country: CA (occurrence: CA)
  Receive Date: 20250219
  Receipt Date: 20250219
  Transmission Date: 20250409
  Serious: Yes (Death, Other)
  Sender: TAKEDA
  Company Number: CA-TAKEDA-2025TUS017595

PATIENT
  Sex: Male
  Weight: 70 kg

DRUGS (11)
  1. VEDOLIZUMAB [Suspect]
     Active Substance: VEDOLIZUMAB
     Indication: Colitis ulcerative
     Dates: start: 20160916, end: 20241220
  2. AMLODIPINE [Concomitant]
     Active Substance: AMLODIPINE BESYLATE
  3. PRAVASTATIN [Concomitant]
     Active Substance: PRAVASTATIN
  4. ZOPICLONE [Concomitant]
     Active Substance: ZOPICLONE
  5. METFORMIN [Concomitant]
     Active Substance: METFORMIN HYDROCHLORIDE
  6. ACETAMINOPHEN [Concomitant]
     Active Substance: ACETAMINOPHEN
     Indication: Arthritis
  7. XARELTO [Concomitant]
     Active Substance: RIVAROXABAN
     Dosage: 2.5 MILLIGRAM, BID
  8. XARELTO [Concomitant]
     Active Substance: RIVAROXABAN
  9. ASPIRIN [Concomitant]
     Active Substance: ASPIRIN
  10. LANTUS [Concomitant]
     Active Substance: INSULIN GLARGINE
  11. ADMELOG [Concomitant]
     Active Substance: INSULIN LISPRO

REACTIONS (1)
  - Death [Fatal]
